FAERS Safety Report 8370123-3 (Version None)
Quarter: 2012Q2

REPORT INFORMATION
  Report Type: 
  Country: None (occurrence: None)
  Receive Date: 20120518
  Receipt Date: 20120514
  Transmission Date: 20120825
  Serious: Yes (Other)
  Sender: FDA-Public Use
  Company Number: DE-ROXANE LABORATORIES, INC.-2012-RO-01255RO

PATIENT
  Sex: Female

DRUGS (7)
  1. HYDROXYCHLOROQUINE SULFATE [Suspect]
  2. ALENDRONATE SODIUM [Suspect]
  3. ENALAPRIL MALEATE [Suspect]
  4. MYCOPHENOLATE MOFETIL [Suspect]
     Indication: SYSTEMIC LUPUS ERYTHEMATOSUS
     Dosage: 0.75 G
  5. ASPIRIN [Suspect]
  6. AZATHIOPRINE [Suspect]
  7. PREDNISONE [Suspect]

REACTIONS (1)
  - ABORTION INDUCED [None]
